FAERS Safety Report 7784418-5 (Version None)
Quarter: 2011Q3

REPORT INFORMATION
  Report Type: 
  Country: None (occurrence: None)
  Receive Date: 20110928
  Receipt Date: 20110921
  Transmission Date: 20111222
  Serious: Yes (Hospitalization)
  Sender: FDA-Public Use
  Company Number: JP-ABBOTT-11P-087-0857873-00

PATIENT
  Age: 72 Year
  Sex: Male

DRUGS (2)
  1. LEUPLIN SR FOR INJECTION KIT 11.25 [Suspect]
     Indication: PROSTATE CANCER
     Route: 058
     Dates: start: 20110415
  2. CASODEX [Concomitant]
     Indication: PROSTATE CANCER
     Route: 048
     Dates: start: 20110225

REACTIONS (1)
  - INTERSTITIAL LUNG DISEASE [None]
